FAERS Safety Report 8139085-8 (Version None)
Quarter: 2012Q1

REPORT INFORMATION
  Report Type: 
  Country: None (occurrence: None)
  Receive Date: 20120215
  Receipt Date: 20120209
  Transmission Date: 20120608
  Serious: Yes (Hospitalization, Other)
  Sender: FDA-Public Use
  Company Number: US-PFIZER INC-2012026353

PATIENT
  Sex: Female

DRUGS (4)
  1. CELEBREX [Suspect]
     Dosage: UNK
  2. NEURONTIN [Suspect]
     Dosage: UNK
  3. VISTARIL [Suspect]
     Dosage: UNK
  4. CADUET [Suspect]
     Dosage: UNK

REACTIONS (5)
  - RENAL FAILURE [None]
  - HYPOACUSIS [None]
  - DRUG INTOLERANCE [None]
  - ARTHRITIS [None]
  - PNEUMONIA [None]
